FAERS Safety Report 16725164 (Version 3)
Quarter: 2025Q1

REPORT INFORMATION
  Report Type: Report from Study
  Country: US (occurrence: US)
  Receive Date: 20190821
  Receipt Date: 20250122
  Transmission Date: 20250409
  Serious: Yes (Other)
  Sender: TAKEDA
  Company Number: US-SHIRE-US201924161

PATIENT
  Sex: Female
  Weight: 68.027 kg

DRUGS (8)
  1. LANADELUMAB [Suspect]
     Active Substance: LANADELUMAB
     Indication: Immune system disorder
     Dosage: 300 MILLIGRAM, Q2WEEKS
     Dates: start: 20190514
  2. LANADELUMAB [Suspect]
     Active Substance: LANADELUMAB
     Indication: Hyperhidrosis
     Dosage: 300 MILLIGRAM, Q2WEEKS
     Dates: start: 20190724
  3. LANADELUMAB [Suspect]
     Active Substance: LANADELUMAB
     Indication: Hereditary angioedema
     Dosage: UNK, UNK, Q2WEEKS
  4. FIRAZYR [Suspect]
     Active Substance: ICATIBANT ACETATE
     Indication: Immune system disorder
  5. FIRAZYR [Suspect]
     Active Substance: ICATIBANT ACETATE
     Indication: Hyperhidrosis
  6. FIRAZYR [Suspect]
     Active Substance: ICATIBANT ACETATE
  7. FIRAZYR [Suspect]
     Active Substance: ICATIBANT ACETATE
  8. SERTRALINE [Concomitant]
     Active Substance: SERTRALINE HYDROCHLORIDE
     Indication: Product used for unknown indication

REACTIONS (4)
  - Abortion spontaneous [Recovered/Resolved]
  - Pregnancy [Recovered/Resolved]
  - Insurance issue [Unknown]
  - Product use issue [Unknown]
